FAERS Safety Report 8033119-7 (Version None)
Quarter: 2012Q1

REPORT INFORMATION
  Report Type: 
  Country: None (occurrence: None)
  Receive Date: 20120110
  Receipt Date: 20120110
  Transmission Date: 20120608
  Serious: Yes (Other)
  Sender: FDA-Public Use
  Company Number: None

PATIENT
  Sex: Female

DRUGS (4)
  1. ASPIRIN [Concomitant]
  2. CYMBALTA [Suspect]
     Indication: ANXIETY
     Dosage: ONE
     Route: 048
  3. CYMBALTA [Suspect]
     Indication: BACK PAIN
     Dosage: ONE
     Route: 048
  4. FEMARA [Concomitant]

REACTIONS (3)
  - DIZZINESS [None]
  - HEADACHE [None]
  - NAUSEA [None]
